FAERS Safety Report 6594299-3 (Version None)
Quarter: 2010Q1

REPORT INFORMATION
  Report Type: 
  Country: None (occurrence: None)
  Receive Date: 20100222
  Receipt Date: 20100125
  Transmission Date: 20100710
  Serious: Yes (Other)
  Sender: FDA-Public Use
  Company Number: CA-ASTRAZENECA-2010SE04264

PATIENT
  Age: 77 Year
  Sex: Male

DRUGS (2)
  1. CRESTOR [Suspect]
     Route: 048
     Dates: start: 20040101, end: 20090801
  2. CRESTOR [Suspect]
     Route: 048
     Dates: start: 20090801, end: 20091101

REACTIONS (2)
  - PROTEINURIA [None]
  - RENAL IMPAIRMENT [None]
